FAERS Safety Report 7809089-0 (Version None)
Quarter: 2011Q4

REPORT INFORMATION
  Report Type: 
  Country: None (occurrence: None)
  Receive Date: 20111012
  Receipt Date: 20110929
  Transmission Date: 20120403
  Serious: Yes (Other)
  Sender: FDA-Public Use
  Company Number: JP-ELI_LILLY_AND_COMPANY-JP201102004819

PATIENT
  Age: 81 Year
  Sex: Female

DRUGS (1)
  1. FORTEO [Suspect]
     Dosage: UNK
     Route: 058
     Dates: start: 20100101

REACTIONS (6)
  - PAIN IN EXTREMITY [None]
  - HYPOAESTHESIA [None]
  - ABDOMINAL PAIN [None]
  - BACK PAIN [None]
  - ARTHRALGIA [None]
  - LYMPHOMA [None]
